FAERS Safety Report 21480848 (Version 1)
Quarter: 2022Q4

REPORT INFORMATION
  Report Type: Report from Study
  Country: US (occurrence: US)
  Receive Date: 20221019
  Receipt Date: 20221019
  Transmission Date: 20230113
  Serious: No
  Sender: FDA-Public Use
  Company Number: US-ABBVIE-4132192

PATIENT
  Sex: Female

DRUGS (1)
  1. HUMIRA [Suspect]
     Active Substance: ADALIMUMAB
     Indication: Product used for unknown indication
     Dosage: DISCONTINUED
     Route: 058

REACTIONS (4)
  - Body temperature increased [Unknown]
  - Device issue [Unknown]
  - Hyperhidrosis [Unknown]
  - Therapeutic response shortened [Unknown]
